FAERS Safety Report 20889872 (Version 15)
Quarter: 2024Q2

REPORT INFORMATION
  Report Type: Spontaneous
  Country: US (occurrence: US)
  Receive Date: 20220530
  Receipt Date: 20240627
  Transmission Date: 20240716
  Serious: Yes (Life-Threatening, Hospitalization, Other)
  Sender: FDA-Public Use
  Company Number: US-PFIZER INC-202101506588

PATIENT
  Age: 75 Year
  Sex: Female

DRUGS (1)
  1. ESTRING [Suspect]
     Active Substance: ESTRADIOL
     Dosage: UNK

REACTIONS (8)
  - Sepsis [Unknown]
  - Uterine abscess [Unknown]
  - Breast cancer [Unknown]
  - Postmenopausal haemorrhage [Unknown]
  - Speech disorder [Unknown]
  - Vaginal discharge [Unknown]
  - Contraindicated product administered [Unknown]
  - Product dispensing error [Unknown]

NARRATIVE: CASE EVENT DATE: 20220101
